FAERS Safety Report 16862586 (Version 1)
Quarter: 2019Q3

REPORT INFORMATION
  Report Type: Spontaneous
  Country: FR (occurrence: FR)
  Receive Date: 20190927
  Receipt Date: 20190927
  Transmission Date: 20191005
  Serious: Yes (Hospitalization)
  Sender: FDA-Public Use
  Company Number: FR-MYLANLABS-2019M1089518

PATIENT
  Age: 50 Year
  Sex: Male

DRUGS (1)
  1. CELECOXIB. [Suspect]
     Active Substance: CELECOXIB
     Indication: RHEUMATIC DISORDER
     Dosage: 200 MILLIGRAM, QD
     Route: 048
     Dates: start: 20190304, end: 20190307

REACTIONS (2)
  - Dermatitis bullous [Recovering/Resolving]
  - Purpura [Recovered/Resolved]

NARRATIVE: CASE EVENT DATE: 20190307
